FAERS Safety Report 9776033 (Version 1)
Quarter: 2013Q4

REPORT INFORMATION
  Report Type: Spontaneous
  Country: US (occurrence: US)
  Receive Date: 20131220
  Receipt Date: 20131220
  Transmission Date: 20140711
  Serious: Yes (Other)
  Sender: FDA-Public Use
  Company Number: US-BAYER-2013-152415

PATIENT
  Age: 71 Year
  Sex: Female
  Weight: 102.4 kg

DRUGS (5)
  1. ALKA-SELTZER PLUS SEVERE SINUS CONGESTION ALLERGY + COUGH LIQUID G [Suspect]
     Indication: NASOPHARYNGITIS
     Dosage: 1 DF, ONCE
     Route: 048
     Dates: start: 20131129, end: 20131129
  2. BUFFERIN [Concomitant]
  3. CALCIUM [Concomitant]
  4. MAGNESIUM [Concomitant]
  5. ZINC [Concomitant]

REACTIONS (2)
  - Transient ischaemic attack [Recovered/Resolved]
  - Expired drug administered [None]
